FAERS Safety Report 13015505 (Version 1)
Quarter: 2016Q4

REPORT INFORMATION
  Report Type: Spontaneous
  Country: US (occurrence: US)
  Receive Date: 20161212
  Receipt Date: 20161212
  Transmission Date: 20170207
  Serious: No
  Sender: FDA-Public Use
  Company Number: US-ASTRAZENECA-2016SF26562

PATIENT
  Age: 198 Day
  Sex: Female

DRUGS (1)
  1. SYNAGIS [Suspect]
     Active Substance: PALIVIZUMAB
     Indication: RESPIRATORY SYNCYTIAL VIRUS INFECTION
     Route: 030
     Dates: start: 20161123

REACTIONS (4)
  - Vomiting [Unknown]
  - Ear discomfort [Unknown]
  - Mucous stools [Unknown]
  - Pyrexia [Unknown]

NARRATIVE: CASE EVENT DATE: 20161127
